FAERS Safety Report 19891517 (Version 1)
Quarter: 2021Q3

REPORT INFORMATION
  Report Type: Spontaneous
  Country: IN (occurrence: IN)
  Receive Date: 20210928
  Receipt Date: 20210928
  Transmission Date: 20211014
  Serious: Yes (Death, Other)
  Sender: FDA-Public Use
  Company Number: IN-IGSA-BIG0016123

PATIENT
  Age: 40 Year
  Sex: Female

DRUGS (1)
  1. HUMAN NORMAL IMMUNOGLOBULIN (IV) [Suspect]
     Active Substance: HUMAN IMMUNOGLOBULIN G
     Indication: GUILLAIN-BARRE SYNDROME
     Dosage: 0.4 GRAM PER KILOGRAM, QD
     Route: 042

REACTIONS (8)
  - Tachyarrhythmia [Fatal]
  - Cerebral infarction [Fatal]
  - Blood pressure fluctuation [Fatal]
  - Bradyarrhythmia [Fatal]
  - Blindness [Fatal]
  - Cardiac arrest [Fatal]
  - Ischaemic stroke [Fatal]
  - Autonomic nervous system imbalance [Fatal]
